FAERS Safety Report 4588783-1 (Version None)
Quarter: 2005Q1

REPORT INFORMATION
  Report Type: 
  Country: None (occurrence: None)
  Receive Date: 20050216
  Receipt Date: 20050208
  Transmission Date: 20050727
  Serious: Yes (Hospitalization)
  Sender: FDA-Public Use
  Company Number: 163-20785-05020163

PATIENT
  Age: 54 Year
  Sex: Male

DRUGS (7)
  1. THALOMID [Suspect]
     Indication: NEUROPATHY PERIPHERAL
     Dosage: 50 MG, DAILY, ORAL
     Route: 048
     Dates: start: 20041103, end: 20050126
  2. ACTOS [Concomitant]
  3. GLUCOTROL XL [Concomitant]
  4. LEVIITRA [Concomitant]
  5. NEURONTIN [Concomitant]
  6. OXYCONTIN [Concomitant]
  7. ZOLOFT [Concomitant]

REACTIONS (1)
  - SPLENIC INFARCTION [None]
